FAERS Safety Report 8595788 (Version 5)
Quarter: 2014Q2

REPORT INFORMATION
  Report Type: Spontaneous
  Country: US (occurrence: US)
  Receive Date: 20120605
  Receipt Date: 20140522
  Transmission Date: 20141212
  Serious: Yes (Hospitalization, Disabling, Other)
  Sender: FDA-Public Use
  Company Number: US-ASTRAZENECA-2012SE35680

PATIENT
  Age: 58 Year
  Sex: Male
  Weight: 79.4 kg

DRUGS (25)
  1. NEXIUM [Suspect]
     Indication: DYSPEPSIA
     Route: 048
  2. NEXIUM [Suspect]
     Indication: GASTRIC DISORDER
     Route: 048
  3. NEXIUM [Suspect]
     Indication: DYSPEPSIA
     Dosage: TWO TIMES A DAY
     Route: 048
     Dates: start: 1989, end: 2004
  4. NEXIUM [Suspect]
     Indication: GASTRIC DISORDER
     Dosage: TWO TIMES A DAY
     Route: 048
     Dates: start: 1989, end: 2004
  5. NEXIUM [Suspect]
     Indication: DYSPEPSIA
     Route: 048
     Dates: start: 20030701
  6. NEXIUM [Suspect]
     Indication: GASTRIC DISORDER
     Route: 048
     Dates: start: 20030701
  7. PRILOSEC [Suspect]
     Indication: HYPERCHLORHYDRIA
     Route: 048
  8. PRILOSEC [Suspect]
     Indication: HYPERCHLORHYDRIA
     Route: 048
     Dates: start: 1989, end: 2004
  9. PRILOSEC [Suspect]
     Indication: HYPERCHLORHYDRIA
     Route: 048
     Dates: start: 20050803
  10. TAGAMET [Concomitant]
     Dates: start: 1989, end: 2004
  11. ROLAIDS [Concomitant]
     Indication: DYSPEPSIA
     Dates: start: 1969, end: 1989
  12. TUMS [Concomitant]
  13. FOLIC ACID [Concomitant]
  14. METHOTREXATE [Concomitant]
     Dates: start: 1995
  15. VICODIN [Concomitant]
  16. ASPIRIN [Concomitant]
  17. PREDNISONE [Concomitant]
     Route: 048
  18. LANSOPRAZOLE [Concomitant]
     Indication: HYPERCHLORHYDRIA
     Route: 048
     Dates: start: 20140424
  19. PIROXICAM [Concomitant]
     Route: 048
     Dates: start: 20140424
  20. VIT D3 [Concomitant]
     Route: 048
     Dates: start: 20080820
  21. CALCIUM [Concomitant]
     Route: 048
  22. ACETAMINOPHEN [Concomitant]
     Route: 048
  23. AMITRIPTYLINE HCL [Concomitant]
     Route: 048
  24. SIMVASTATIN [Concomitant]
     Route: 048
     Dates: start: 20080521
  25. HYDROXYCHLOROQUINE SULFATE [Concomitant]
     Route: 048

REACTIONS (20)
  - Hip fracture [Unknown]
  - Femoral neck fracture [Unknown]
  - Bone density decreased [Unknown]
  - Stress fracture [Unknown]
  - Back disorder [Unknown]
  - Prostate cancer [Unknown]
  - Osteoporosis [Unknown]
  - Arthritis [Unknown]
  - Back pain [Unknown]
  - Multiple fractures [Unknown]
  - Bone disorder [Unknown]
  - Bone pain [Unknown]
  - Calcium deficiency [Unknown]
  - Rheumatoid arthritis [Unknown]
  - Vitamin D deficiency [Unknown]
  - Osteopenia [Unknown]
  - Cervical spinal stenosis [Unknown]
  - Spinal osteoarthritis [Unknown]
  - Foot fracture [Unknown]
  - Intervertebral disc protrusion [Unknown]
